FAERS Safety Report 5578775-8 (Version None)
Quarter: 2007Q4

REPORT INFORMATION
  Report Type: 
  Country: None (occurrence: None)
  Receive Date: 20071227
  Receipt Date: 20071227
  Transmission Date: 20080405
  Serious: Yes (Other)
  Sender: FDA-Public Use
  Company Number: None

PATIENT
  Sex: Female
  Weight: 72.5755 kg

DRUGS (1)
  1. CHANTIX [Suspect]
     Indication: SMOKING CESSATION THERAPY
     Dosage: 0.5 MG  BID  PO
     Route: 048
     Dates: start: 20071205, end: 20071215

REACTIONS (4)
  - ANXIETY [None]
  - DEPRESSION [None]
  - NAUSEA [None]
  - PALPITATIONS [None]
